FAERS Safety Report 7397526-8 (Version None)
Quarter: 2011Q2

REPORT INFORMATION
  Report Type: 
  Country: None (occurrence: None)
  Receive Date: 20110406
  Receipt Date: 20110401
  Transmission Date: 20111010
  Serious: Yes (Hospitalization, Other)
  Sender: FDA-Public Use
  Company Number: US-PFIZER INC-2011073112

PATIENT
  Sex: Male

DRUGS (1)
  1. SUTENT [Suspect]
     Indication: METASTATIC RENAL CELL CARCINOMA
     Dosage: 37.5 MG, DAILY, X 28 DAYS EVERY 42 DAYS
     Dates: start: 20110311

REACTIONS (14)
  - FATIGUE [None]
  - HYPERSOMNIA [None]
  - CONTUSION [None]
  - JAUNDICE [None]
  - TRANSIENT ISCHAEMIC ATTACK [None]
  - BRADYPHRENIA [None]
  - NAUSEA [None]
  - ULCER [None]
  - PRURITUS [None]
  - DIARRHOEA [None]
  - DRY MOUTH [None]
  - DYSGEUSIA [None]
  - APHASIA [None]
  - FRUSTRATION [None]
